FAERS Safety Report 8604241-9 (Version None)
Quarter: 2012Q3

REPORT INFORMATION
  Report Type: 
  Country: None (occurrence: None)
  Receive Date: 20120820
  Receipt Date: 20120809
  Transmission Date: 20120928
  Serious: Yes (Hospitalization, Other)
  Sender: FDA-Public Use
  Company Number: US-BAYER-2012-039234

PATIENT
  Age: 18 Year
  Sex: Female

DRUGS (6)
  1. YAZ [Suspect]
     Indication: ACNE
  2. ANTIBIOTICS [Concomitant]
  3. YAZ [Suspect]
     Indication: CONTRACEPTION
     Dosage: UNK
     Dates: start: 20080801, end: 20090901
  4. YAZ [Suspect]
     Indication: HORMONE LEVEL ABNORMAL
  5. HYDROCODONE [Concomitant]
  6. VICODIN [Concomitant]
     Indication: CHEST PAIN
     Dosage: 3 TABS A DAY

REACTIONS (7)
  - DEPRESSION [None]
  - GALLBLADDER DISORDER [None]
  - INJURY [None]
  - ANXIETY [None]
  - PREGNANCY ON ORAL CONTRACEPTIVE [None]
  - PAIN [None]
  - CHOLECYSTITIS CHRONIC [None]
